FAERS Safety Report 10015799 (Version 1)
Quarter: 2014Q1

REPORT INFORMATION
  Report Type: Spontaneous
  Country: US (occurrence: US)
  Receive Date: 20140317
  Receipt Date: 20140317
  Transmission Date: 20141002
  Serious: Yes (Other)
  Sender: FDA-Public Use
  Company Number: US-GLAXOSMITHKLINE-A1064109A

PATIENT
  Age: 66 Year
  Sex: Female

DRUGS (2)
  1. VENTOLIN [Suspect]
     Indication: PRODUCT USED FOR UNKNOWN INDICATION
     Dosage: 2PUFF TWICE PER DAY
     Route: 055
     Dates: start: 2012
  2. ANTIHYPERTENSIVE [Concomitant]

REACTIONS (4)
  - Atypical pneumonia [Recovering/Resolving]
  - Nasopharyngitis [Unknown]
  - Lung infection [Recovering/Resolving]
  - Cough [Unknown]
